FAERS Safety Report 24455964 (Version 2)
Quarter: 2024Q4

REPORT INFORMATION
  Report Type: Spontaneous
  Country: MX (occurrence: MX)
  Receive Date: 20241017
  Receipt Date: 20241018
  Transmission Date: 20250115
  Serious: No
  Sender: ROCHE
  Company Number: MX-ROCHE-3497194

PATIENT
  Age: 57 Year
  Sex: Male

DRUGS (5)
  1. RITUXIMAB [Suspect]
     Active Substance: RITUXIMAB
     Indication: Blastic plasmacytoid dendritic cell neoplasia
     Route: 065
  2. FILGRASTIM [Concomitant]
     Active Substance: FILGRASTIM
  3. ROMIPLOSTIM [Concomitant]
     Active Substance: ROMIPLOSTIM
  4. ELTROMBOPAG [Concomitant]
     Active Substance: ELTROMBOPAG
  5. ERYTHROPOIETIN [Concomitant]
     Active Substance: ERYTHROPOIETIN

REACTIONS (2)
  - Off label use [Unknown]
  - No adverse event [Unknown]
